FAERS Safety Report 4999475-9 (Version None)
Quarter: 2006Q2

REPORT INFORMATION
  Report Type: 
  Country: None (occurrence: None)
  Receive Date: 20060509
  Receipt Date: 20060509
  Transmission Date: 20061013
  Serious: Yes (Life-Threatening, Hospitalization)
  Sender: FDA-Public Use
  Company Number: None

PATIENT
  Age: 60 Year
  Sex: Male

DRUGS (12)
  1. BACTRIM DS [Suspect]
     Indication: INFECTION
     Dosage: 800/160 PO Q12H
     Route: 048
     Dates: start: 20051122, end: 20051122
  2. APAP TAB [Concomitant]
  3. AZATHIOPRINE [Concomitant]
  4. CALCIUM GLUCONATE [Concomitant]
  5. INSULIN [Concomitant]
  6. IBUPROFEN [Concomitant]
  7. LANSOPRAZOLE [Concomitant]
  8. OXYCODONE [Concomitant]
  9. PROMETHAZINE [Concomitant]
  10. SENNA [Concomitant]
  11. TACROLIMUS [Concomitant]
  12. TEMAZEPAM [Concomitant]

REACTIONS (5)
  - BIOPSY SKIN ABNORMAL [None]
  - DRUG TOXICITY [None]
  - MOUTH ULCERATION [None]
  - RASH ERYTHEMATOUS [None]
  - RASH PRURITIC [None]
